FAERS Safety Report 20069619 (Version 1)
Quarter: 2021Q4

REPORT INFORMATION
  Report Type: Spontaneous
  Country: US (occurrence: None)
  Receive Date: 20211114
  Receipt Date: 20211114
  Transmission Date: 20220303
  Serious: Yes (Other)
  Sender: FDA-Public Use
  Company Number: None

PATIENT
  Age: 64 Year
  Weight: 86.4 kg

DRUGS (8)
  1. HIZENTRA [Suspect]
     Active Substance: HUMAN IMMUNOGLOBULIN G
     Indication: Hypogammaglobulinaemia
     Dosage: OTHER FREQUENCY : ONCE WEEKLY;?
     Route: 058
  2. Advair Diskus 50 mcg dose [Concomitant]
  3. albuteral sulfate HFA [Concomitant]
  4. Allegra Allergy 180 mg [Concomitant]
  5. Benicar HCT 20 mcg [Concomitant]
  6. Flonase Allergy Relief 50 mcg/Act [Concomitant]
  7. GABAPENTIN [Concomitant]
     Active Substance: GABAPENTIN
  8. Qvar 890 mcg/act [Concomitant]

REACTIONS (4)
  - Flushing [None]
  - Discomfort [None]
  - Infusion related reaction [None]
  - Recalled product administered [None]

NARRATIVE: CASE EVENT DATE: 20211028
